FAERS Safety Report 25316791 (Version 2)
Quarter: 2025Q4

REPORT INFORMATION
  Report Type: Spontaneous
  Country: EU (occurrence: EU)
  Receive Date: 20250515
  Receipt Date: 20251031
  Transmission Date: 20260117
  Serious: Yes (Other)
  Sender: TEVA
  Company Number: EU-TEVA-VS-3329878

PATIENT
  Age: 21 Year
  Sex: Male

DRUGS (4)
  1. LEVETIRACETAM [Suspect]
     Active Substance: LEVETIRACETAM
     Indication: Partial seizures
     Route: 065
  2. BECLOMETHASONE DIPROPIONATE [Concomitant]
     Active Substance: BECLOMETHASONE DIPROPIONATE
     Indication: Asthma
     Route: 065
  3. FORMOTEROL FUMARATE DIHYDRATE [Concomitant]
     Active Substance: FORMOTEROL FUMARATE DIHYDRATE
     Indication: Asthma
     Route: 065
  4. LACOSAMIDE [Suspect]
     Active Substance: LACOSAMIDE
     Indication: Partial seizures
     Route: 065

REACTIONS (3)
  - Acne [Recovering/Resolving]
  - Drug ineffective [Unknown]
  - Keloid scar [Recovering/Resolving]
